FAERS Safety Report 10370942 (Version 4)
Quarter: 2015Q2

REPORT INFORMATION
  Report Type: Report from Study
  Country: HK (occurrence: HK)
  Receive Date: 20140808
  Receipt Date: 20150421
  Transmission Date: 20150821
  Serious: Yes (Hospitalization)
  Sender: FDA-Public Use
  Company Number: HK-OTSUKA-JP-2014-16219

PATIENT

DRUGS (18)
  1. BLINDED PROBUCOL [Suspect]
     Active Substance: PROBUCOL
     Indication: CEREBRAL INFARCTION
     Dosage: UNK
     Dates: start: 20130828, end: 20131230
  2. BACLOFEN. [Concomitant]
     Active Substance: BACLOFEN
     Indication: PRODUCT USED FOR UNKNOWN INDICATION
     Dosage: UNK
     Route: 065
     Dates: start: 20140922
  3. BLINDED CILOSTAZOL [Suspect]
     Active Substance: CILOSTAZOL
     Dosage: UNK
     Dates: start: 20131231, end: 20140113
  4. PLACEBO [Suspect]
     Active Substance: UNSPECIFIED INGREDIENT
     Dosage: UNK
     Dates: start: 20140324
  5. BLINDED PROBUCOL [Suspect]
     Active Substance: PROBUCOL
     Dosage: UNK
     Dates: start: 20140324
  6. AMLODIPINE BESYLATE. [Concomitant]
     Active Substance: AMLODIPINE BESYLATE
     Indication: PRODUCT USED FOR UNKNOWN INDICATION
     Dosage: UNK
     Route: 065
     Dates: start: 20120927
  7. PLACEBO [Suspect]
     Active Substance: UNSPECIFIED INGREDIENT
     Indication: CEREBRAL INFARCTION
     Dosage: UNK
     Dates: start: 20130828, end: 20131230
  8. SIMVASTATIN. [Concomitant]
     Active Substance: SIMVASTATIN
     Indication: PRODUCT USED FOR UNKNOWN INDICATION
     Dosage: UNK
     Route: 065
     Dates: start: 20110521
  9. BLINDED ASPIRIN [Suspect]
     Active Substance: ASPIRIN
     Indication: CEREBRAL INFARCTION
     Dosage: UNK
     Dates: start: 20130828, end: 20131230
  10. BLINDED CILOSTAZOL [Suspect]
     Active Substance: CILOSTAZOL
     Dosage: UNK
     Dates: start: 20140324
  11. NC-PROBUCOL [Suspect]
     Active Substance: PROBUCOL
     Dosage: 250 MG MILLIGRAM(S), BID
     Route: 048
     Dates: start: 20131231
  12. FAMOTIDINE. [Concomitant]
     Active Substance: FAMOTIDINE
     Indication: PRODUCT USED FOR UNKNOWN INDICATION
     Dosage: UNK
     Route: 065
     Dates: start: 20130821
  13. BLINDED CILOSTAZOL [Suspect]
     Active Substance: CILOSTAZOL
     Indication: CEREBRAL INFARCTION
     Dosage: UNK
     Dates: start: 20130828, end: 20131230
  14. BLINDED ASPIRIN [Suspect]
     Active Substance: ASPIRIN
     Dosage: UNK
     Dates: start: 20131231, end: 20140113
  15. PLACEBO [Suspect]
     Active Substance: UNSPECIFIED INGREDIENT
     Dosage: UNK
     Dates: start: 20131231, end: 20140113
  16. BLINDED PROBUCOL [Suspect]
     Active Substance: PROBUCOL
     Dosage: UNK
     Dates: start: 20131231, end: 20140113
  17. BLINDED ASPIRIN [Suspect]
     Active Substance: ASPIRIN
     Dosage: UNK
     Dates: start: 20140324
  18. NC-PROBUCOL [Suspect]
     Active Substance: PROBUCOL
     Indication: CEREBRAL INFARCTION
     Dosage: 250 MG MILLIGRAM(S), BID
     Route: 048
     Dates: start: 20130828, end: 20131230

REACTIONS (3)
  - Neck mass [Recovered/Resolved]
  - Cervical myelopathy [Recovered/Resolved with Sequelae]
  - Hemiparesis [Recovered/Resolved]

NARRATIVE: CASE EVENT DATE: 20131230
